FAERS Safety Report 9975911 (Version 1)
Quarter: 2014Q1

REPORT INFORMATION
  Report Type: Spontaneous
  Country: US (occurrence: US)
  Receive Date: 20140306
  Receipt Date: 20140306
  Transmission Date: 20141002
  Serious: No
  Sender: FDA-Public Use
  Company Number: US-PFIZER INC-2014062131

PATIENT
  Age: 76 Year
  Sex: Male

DRUGS (15)
  1. LYRICA [Suspect]
     Dosage: UNK
  2. LIPITOR [Suspect]
     Dosage: UNK
  3. ATIVAN [Suspect]
     Dosage: UNK
  4. MOTRIN IB [Suspect]
     Dosage: UNK
  5. MOTRIN [Suspect]
     Dosage: UNK
  6. PRAMIPEXOLE 2HCL [Suspect]
     Dosage: UNK
  7. AMBIEN [Suspect]
     Dosage: UNK
  8. CIPRO [Suspect]
     Dosage: UNK
  9. CYMBALTA [Suspect]
     Dosage: UNK
  10. NIACIN [Suspect]
     Dosage: UNK
  11. PENICILLIN NOS [Suspect]
  12. REGLAN [Suspect]
     Dosage: UNK
  13. SEROQUEL [Suspect]
     Dosage: UNK
  14. VICODIN [Suspect]
     Dosage: UNK
  15. ZOCOR [Suspect]
     Dosage: UNK

REACTIONS (1)
  - Drug hypersensitivity [Unknown]
